FAERS Safety Report 9315224 (Version 1)
Quarter: 2013Q2

REPORT INFORMATION
  Report Type: Spontaneous
  Country: FR (occurrence: FR)
  Receive Date: 20130529
  Receipt Date: 20130529
  Transmission Date: 20140414
  Serious: Yes (Other)
  Sender: FDA-Public Use
  Company Number: FR-ROCHE-1223811

PATIENT
  Age: 82 Year
  Sex: Female
  Weight: 87 kg

DRUGS (9)
  1. RIVOTRIL [Suspect]
     Indication: PAIN IN EXTREMITY
     Route: 048
     Dates: start: 20130423, end: 20130427
  2. LEXOMIL [Concomitant]
     Dosage: 1/4 DF
     Route: 065
  3. INEXIUM [Concomitant]
     Route: 065
  4. JANUVIA [Concomitant]
     Route: 065
  5. LODOZ [Concomitant]
     Route: 065
  6. PREVISCAN (FRANCE) [Concomitant]
     Route: 065
  7. ARIMIDEX [Concomitant]
     Route: 065
  8. CRESTOR [Concomitant]
     Route: 065
  9. DAFALGAN [Concomitant]
     Route: 065

REACTIONS (1)
  - Swollen tongue [Recovered/Resolved]
